FAERS Safety Report 9377905 (Version 3)
Quarter: 2013Q3

REPORT INFORMATION
  Report Type: Spontaneous
  Country: JP (occurrence: JP)
  Receive Date: 20130701
  Receipt Date: 20130813
  Transmission Date: 20140515
  Serious: Yes (Death)
  Sender: FDA-Public Use
  Company Number: PHHY2013JP067934

PATIENT
  Age: 85 Year
  Sex: Male

DRUGS (5)
  1. RIVASTIGMIN [Suspect]
     Indication: DEMENTIA ALZHEIMER^S TYPE
     Dosage: 4.5 MG, DAILY
     Route: 062
     Dates: start: 20130610
  2. AMLODIPINE BESILATE [Suspect]
     Indication: HYPERTENSION
     Dosage: 5 MG, DAILY
     Route: 048
     Dates: start: 20130610
  3. QUETIAPINE FUMARATE [Concomitant]
     Indication: SCHIZOPHRENIA
     Dosage: 12.50 MG, DAILY
     Route: 048
     Dates: start: 20130307, end: 20130403
  4. QUETIAPINE FUMARATE [Concomitant]
     Dosage: 25 MG, DAILY
     Route: 048
     Dates: start: 20130404, end: 20130501
  5. REMINYL [Concomitant]
     Indication: DEMENTIA ALZHEIMER^S TYPE
     Dosage: 16 MG, DAILY
     Route: 048
     Dates: start: 20130207, end: 20130306

REACTIONS (1)
  - Myocardial ischaemia [Fatal]
